FAERS Safety Report 8474558-X (Version None)
Quarter: 2012Q2

REPORT INFORMATION
  Report Type: 
  Country: None (occurrence: None)
  Receive Date: 20120628
  Receipt Date: 20120620
  Transmission Date: 20120825
  Serious: Yes (Hospitalization)
  Sender: FDA-Public Use
  Company Number: US-BAYER-2012-062585

PATIENT
  Age: 42 Year
  Sex: Female
  Weight: 113 kg

DRUGS (2)
  1. SYNTHROID [Concomitant]
     Dosage: 0.75 MG, UNK
     Dates: start: 20040810
  2. YASMIN [Suspect]
     Dosage: UNK
     Dates: end: 20040802

REACTIONS (1)
  - DEEP VEIN THROMBOSIS [None]
